FAERS Safety Report 15766960 (Version 2)
Quarter: 2019Q1

REPORT INFORMATION
  Report Type: Spontaneous
  Country: US (occurrence: US)
  Receive Date: 20181227
  Receipt Date: 20190107
  Transmission Date: 20190417
  Serious: Yes (Other)
  Sender: FDA-Public Use
  Company Number: US-HIKMA PHARMACEUTICALS USA INC.-US-H14001-18-09146

PATIENT
  Age: 31 Year
  Sex: Male
  Weight: 80 kg

DRUGS (21)
  1. LIDOCAINE. [Suspect]
     Active Substance: LIDOCAINE
     Indication: WOUND COMPLICATION
     Dosage: 60MG/H
     Route: 042
  2. MORPHINE [Concomitant]
     Active Substance: MORPHINE
     Indication: CANCER PAIN
     Dosage: ()
     Route: 065
  3. FENTANYL. [Concomitant]
     Active Substance: FENTANYL
     Indication: CANCER PAIN
     Route: 065
  4. FENTANYL. [Concomitant]
     Active Substance: FENTANYL
     Indication: WOUND COMPLICATION
  5. HYDROMORPHONE [Concomitant]
     Active Substance: HYDROMORPHONE
     Indication: WOUND COMPLICATION
     Route: 042
  6. NIVOLUMAB [Concomitant]
     Active Substance: NIVOLUMAB
     Indication: SQUAMOUS CELL CARCINOMA
     Route: 065
  7. LIDOCAINE. [Suspect]
     Active Substance: LIDOCAINE
     Dosage: 48 MG/H
     Route: 042
  8. GABAPENTIN. [Concomitant]
     Active Substance: GABAPENTIN
     Indication: CANCER PAIN
     Dosage: ESCALATING DOSES OF SCHEDULED GABAPENTIN ()
  9. MORPHINE [Concomitant]
     Active Substance: MORPHINE
     Indication: WOUND COMPLICATION
  10. GABAPENTIN. [Concomitant]
     Active Substance: GABAPENTIN
     Indication: WOUND COMPLICATION
     Route: 065
  11. KETAMINE [Concomitant]
     Active Substance: KETAMINE
     Indication: MUSCULOSKELETAL PAIN
     Dosage: TITRATED TO 10 MG/HOUR
     Route: 065
  12. LIDOCAINE. [Suspect]
     Active Substance: LIDOCAINE
     Indication: CANCER PAIN
     Dosage: 150MG FOR 30 MINUTES TWICE DAILY
     Route: 040
  13. LIDOCAINE. [Suspect]
     Active Substance: LIDOCAINE
     Dosage: 36 MG/H
     Route: 042
  14. LIDOCAINE. [Suspect]
     Active Substance: LIDOCAINE
     Dosage: 24 MG/H
     Route: 042
  15. PREDNISONE. [Concomitant]
     Active Substance: PREDNISONE
     Indication: PYODERMA GANGRENOSUM
     Route: 065
  16. PARACETAMOL [Concomitant]
     Active Substance: ACETAMINOPHEN
     Indication: CANCER PAIN
  17. KETAMINE [Concomitant]
     Active Substance: KETAMINE
  18. HYDROMORPHONE [Concomitant]
     Active Substance: HYDROMORPHONE
     Indication: CANCER PAIN
  19. METHADONE [Concomitant]
     Active Substance: METHADONE HYDROCHLORIDE
     Indication: WOUND COMPLICATION
     Dosage: INITIAL DOSE ()
  20. METHADONE [Concomitant]
     Active Substance: METHADONE HYDROCHLORIDE
     Indication: CANCER PAIN
     Route: 065
  21. PARACETAMOL [Concomitant]
     Active Substance: ACETAMINOPHEN
     Indication: WOUND COMPLICATION
     Route: 065

REACTIONS (4)
  - Lethargy [Recovering/Resolving]
  - Confusional state [Recovering/Resolving]
  - Off label use [Recovered/Resolved]
  - Drug level increased [Recovering/Resolving]
